FAERS Safety Report 4848876-8 (Version None)
Quarter: 2005Q4

REPORT INFORMATION
  Report Type: 
  Country: None (occurrence: None)
  Receive Date: 20051208
  Receipt Date: 20050706
  Transmission Date: 20060501
  Serious: Yes (Hospitalization, Disabling)
  Sender: FDA-Public Use
  Company Number: US-MERCK-0507USA01028

PATIENT
  Age: 69 Year
  Sex: Male

DRUGS (12)
  1. VIOXX [Suspect]
     Indication: PAIN
     Route: 048
     Dates: start: 20000901, end: 20001101
  2. GLUCOPHAGE [Concomitant]
     Route: 065
  3. GLYBURIDE [Concomitant]
     Route: 065
  4. LISINOPRIL [Concomitant]
     Route: 065
  5. HYTRIN [Concomitant]
     Route: 065
  6. PROSCAR [Concomitant]
     Route: 065
  7. PROCARDIA XL [Concomitant]
     Route: 065
  8. NEURONTIN [Concomitant]
     Route: 065
  9. ZANTAC [Concomitant]
     Route: 065
  10. PHENERGAN TABLETS/SUPPOSITORIES [Concomitant]
     Route: 065
  11. ALLEGRA [Concomitant]
     Route: 065
  12. MELATONIN [Concomitant]
     Route: 065

REACTIONS (6)
  - CEREBELLAR INFARCTION [None]
  - CEREBROVASCULAR ACCIDENT [None]
  - CONDITION AGGRAVATED [None]
  - DEHYDRATION [None]
  - HYPERTENSION [None]
  - ROAD TRAFFIC ACCIDENT [None]
